FAERS Safety Report 8238387-4 (Version None)
Quarter: 2012Q1

REPORT INFORMATION
  Report Type: 
  Country: None (occurrence: None)
  Receive Date: 20120327
  Receipt Date: 20120320
  Transmission Date: 20120608
  Serious: Yes (Other)
  Sender: FDA-Public Use
  Company Number: IT-PFIZER INC-2012073551

PATIENT
  Age: 37 Year
  Sex: Female

DRUGS (2)
  1. GABAPENTIN [Suspect]
     Indication: DEPRESSION
     Dosage: 300 MG, 1X/DAY
     Route: 048
     Dates: start: 20110913, end: 20111004
  2. EUTIMIL [Concomitant]
     Dosage: UNK
     Dates: start: 20051103, end: 20111004

REACTIONS (4)
  - CHEST INJURY [None]
  - NAUSEA [None]
  - FALL [None]
  - SYNCOPE [None]
